FAERS Safety Report 7384486-9 (Version None)
Quarter: 2011Q1

REPORT INFORMATION
  Report Type: 
  Country: None (occurrence: None)
  Receive Date: 20110322
  Receipt Date: 20110308
  Transmission Date: 20110831
  Serious: Yes (Hospitalization, Other)
  Sender: FDA-Public Use
  Company Number: 021659

PATIENT
  Sex: Male

DRUGS (41)
  1. PRIMIDONE [Suspect]
     Indication: PARKINSON'S DISEASE
     Dosage: SEE IMAGE
     Dates: start: 20080710, end: 20080901
  2. PRIMIDONE [Suspect]
     Indication: PARKINSON'S DISEASE
     Dosage: SEE IMAGE
     Dates: start: 20080707, end: 20080708
  3. PRIMIDONE [Suspect]
     Indication: PARKINSON'S DISEASE
     Dosage: SEE IMAGE
     Dates: start: 20100721, end: 20100920
  4. PRIMIDONE [Suspect]
     Indication: PARKINSON'S DISEASE
     Dosage: SEE IMAGE
     Dates: start: 20100921, end: 20101004
  5. PRIMIDONE [Suspect]
     Indication: PARKINSON'S DISEASE
     Dosage: SEE IMAGE
     Dates: start: 20081104, end: 20081110
  6. PRIMIDONE [Suspect]
     Indication: PARKINSON'S DISEASE
     Dosage: SEE IMAGE
     Dates: start: 20101008
  7. PRIMIDONE [Suspect]
     Indication: PARKINSON'S DISEASE
     Dosage: SEE IMAGE
     Dates: start: 20080916, end: 20081103
  8. PRIMIDONE [Suspect]
     Indication: PARKINSON'S DISEASE
     Dosage: SEE IMAGE
     Dates: start: 20080709, end: 20080709
  9. PRIMIDONE [Suspect]
     Indication: PARKINSON'S DISEASE
     Dosage: SEE IMAGE
     Dates: start: 20081111, end: 20100422
  10. PRIMIDONE [Suspect]
     Indication: PARKINSON'S DISEASE
     Dosage: SEE IMAGE
     Dates: start: 20100423, end: 20100720
  11. PRIMIDONE [Suspect]
     Indication: PARKINSON'S DISEASE
     Dosage: SEE IMAGE
     Dates: start: 20101005, end: 20101007
  12. MOVIPREP [Concomitant]
  13. SELEGILINE [Suspect]
     Indication: PARKINSON'S DISEASE
     Dosage: 5 MG QD
     Dates: start: 20081114, end: 20101004
  14. NOVORAPID [Concomitant]
  15. MADOPAR [Concomitant]
  16. CLONAZEPAM [Concomitant]
  17. PROTAPHANE [Concomitant]
  18. LORATADINE [Suspect]
     Indication: PARKINSON'S DISEASE
     Dosage: 50 MG, QD
     Dates: start: 20081111, end: 20090312
  19. LORATADINE [Suspect]
     Indication: PARKINSON'S DISEASE
     Dosage: 50 MG, QD
     Dates: start: 20090509, end: 20091109
  20. LORATADINE [Suspect]
     Indication: PARKINSON'S DISEASE
     Dosage: 50 MG, QD
     Dates: start: 20081109, end: 20081110
  21. LORATADINE [Suspect]
     Indication: PARKINSON'S DISEASE
     Dosage: 50 MG, QD
     Dates: start: 20090313, end: 20090608
  22. LORATADINE [Suspect]
     Indication: PARKINSON'S DISEASE
     Dosage: 50 MG, QD
     Dates: start: 20091110, end: 20101003
  23. LORATADINE [Suspect]
     Indication: PARKINSON'S DISEASE
     Dosage: 50 MG, QD
     Dates: start: 20081104, end: 20081108
  24. LORATADINE [Suspect]
     Indication: PARKINSON'S DISEASE
     Dosage: 50 MG, QD
     Dates: start: 20101004
  25. NEUPRO [Suspect]
     Indication: PARKINSON'S DISEASE
     Dosage: SEE IMAGE
     Route: 062
     Dates: start: 20081110, end: 20090302
  26. NEUPRO [Suspect]
     Indication: PARKINSON'S DISEASE
     Dosage: SEE IMAGE
     Route: 062
     Dates: start: 20090608, end: 20090625
  27. NEUPRO [Suspect]
     Indication: PARKINSON'S DISEASE
     Dosage: SEE IMAGE
     Route: 062
     Dates: start: 20101018
  28. NEUPRO [Suspect]
     Indication: PARKINSON'S DISEASE
     Dosage: SEE IMAGE
     Route: 062
     Dates: start: 20090303, end: 20090430
  29. NEUPRO [Suspect]
     Indication: PARKINSON'S DISEASE
     Dosage: SEE IMAGE
     Route: 062
     Dates: start: 20101008, end: 20101011
  30. NEUPRO [Suspect]
     Indication: PARKINSON'S DISEASE
     Dosage: SEE IMAGE
     Route: 062
     Dates: start: 20101014, end: 20101017
  31. NEUPRO [Suspect]
     Indication: PARKINSON'S DISEASE
     Dosage: SEE IMAGE
     Route: 062
     Dates: start: 20080620, end: 20080622
  32. NEUPRO [Suspect]
     Indication: PARKINSON'S DISEASE
     Dosage: SEE IMAGE
     Route: 062
     Dates: start: 20080623, end: 20081102
  33. NEUPRO [Suspect]
     Indication: PARKINSON'S DISEASE
     Dosage: SEE IMAGE
     Route: 062
     Dates: start: 20090501, end: 20090507
  34. NEUPRO [Suspect]
     Indication: PARKINSON'S DISEASE
     Dosage: SEE IMAGE
     Route: 062
     Dates: start: 20101012, end: 20101012
  35. NEUPRO [Suspect]
     Indication: PARKINSON'S DISEASE
     Dosage: SEE IMAGE
     Route: 062
     Dates: start: 20081103, end: 20081109
  36. NEUPRO [Suspect]
     Indication: PARKINSON'S DISEASE
     Dosage: SEE IMAGE
     Route: 062
     Dates: start: 20101005, end: 20101007
  37. NEUPRO [Suspect]
     Indication: PARKINSON'S DISEASE
     Dosage: SEE IMAGE
     Route: 062
     Dates: start: 20101013, end: 20101013
  38. NEUPRO [Suspect]
     Indication: PARKINSON'S DISEASE
     Dosage: SEE IMAGE
     Route: 062
     Dates: start: 20080609, end: 20080619
  39. NEUPRO [Suspect]
     Indication: PARKINSON'S DISEASE
     Dosage: SEE IMAGE
     Route: 062
     Dates: start: 20080604, end: 20080608
  40. NEUPRO [Suspect]
     Indication: PARKINSON'S DISEASE
     Dosage: SEE IMAGE
     Route: 062
     Dates: start: 20090626, end: 20101004
  41. LEVOTHYROXINE SODIUM [Concomitant]

REACTIONS (4)
  - SLEEP DISORDER [None]
  - HEPATIC CYST [None]
  - PARKINSON'S DISEASE [None]
  - HALLUCINATION [None]
